FAERS Safety Report 4952071-1 (Version None)
Quarter: 2006Q1

REPORT INFORMATION
  Report Type: 
  Country: None (occurrence: None)
  Receive Date: 20060323
  Receipt Date: 20060317
  Transmission Date: 20060701
  Serious: Yes (Hospitalization)
  Sender: FDA-Public Use
  Company Number: US-KINGPHARMUSA00001-K200600355

PATIENT
  Age: 76 Year
  Sex: Female

DRUGS (6)
  1. ALTACE [Suspect]
     Indication: ESSENTIAL HYPERTENSION
     Dosage: 2 MG, QD
     Route: 048
  2. DITROPAN [Suspect]
     Dosage: 5 MG, QD
     Route: 048
  3. AROPAX [Suspect]
     Indication: ANXIETY DISORDER
     Dosage: 10 MG, QD
     Route: 048
  4. QUININE SULPHATE [Concomitant]
     Dosage: 1 U, UNK
     Route: 048
  5. TENOXICAM [Concomitant]
     Dosage: 500 UG, UNK
     Route: 048
  6. ASPIRIN [Concomitant]
     Dosage: 100 MG, UNK
     Route: 048

REACTIONS (4)
  - CONFUSIONAL STATE [None]
  - DELIRIUM [None]
  - HYPONATRAEMIA [None]
  - PSYCHOTIC DISORDER [None]
